FAERS Safety Report 22137006 (Version 1)
Quarter: 2023Q1

REPORT INFORMATION
  Report Type: Report from Study
  Country: US (occurrence: US)
  Receive Date: 20230324
  Receipt Date: 20230324
  Transmission Date: 20230418
  Serious: Yes (Hospitalization)
  Sender: FDA-Public Use
  Company Number: US-SEATTLE GENETICS-2019SGN01088

PATIENT
  Age: 64 Year
  Sex: Female
  Weight: 67.6 kg

DRUGS (24)
  1. TUCATINIB [Suspect]
     Active Substance: TUCATINIB
     Indication: Breast cancer
     Dosage: 300 MG, BID
     Route: 048
     Dates: start: 20181204, end: 20190326
  2. PALBOCICLIB [Suspect]
     Active Substance: PALBOCICLIB
     Indication: Breast cancer
     Dosage: 75 MG, QCYCLE
     Route: 048
     Dates: start: 20190226, end: 20190404
  3. PALBOCICLIB [Suspect]
     Active Substance: PALBOCICLIB
     Dosage: 100 MG, QCYCLE
     Route: 048
     Dates: start: 20190129, end: 20190225
  4. PALBOCICLIB [Suspect]
     Active Substance: PALBOCICLIB
     Dosage: 125 MG, QCYCLE
     Route: 048
     Dates: start: 20181204, end: 20190128
  5. LETROZOLE [Suspect]
     Active Substance: LETROZOLE
     Indication: Breast cancer
     Dosage: 2.5 MG, QD
     Route: 048
     Dates: start: 20181204, end: 20190408
  6. CALCIUM [Concomitant]
     Active Substance: CALCIUM
     Indication: Supplementation therapy
     Dosage: UNK, QD
     Route: 048
     Dates: start: 20181115
  7. CHOLECALCIFEROL [Concomitant]
     Active Substance: CHOLECALCIFEROL
     Indication: Vitamin D deficiency
     Dosage: 50000 IU, QWEEK
     Route: 048
     Dates: start: 20181113
  8. CETIRIZINE HCL [Concomitant]
     Active Substance: CETIRIZINE HYDROCHLORIDE
     Indication: Nasal congestion
     Dosage: UNK, PRN
     Route: 048
     Dates: start: 20181017
  9. CETIRIZINE HCL [Concomitant]
     Active Substance: CETIRIZINE HYDROCHLORIDE
     Indication: Seasonal allergy
  10. FISH OIL [Concomitant]
     Active Substance: FISH OIL
     Indication: Supplementation therapy
     Dosage: UNK, QD
     Route: 048
     Dates: start: 20181115
  11. MAGNESIUM [Concomitant]
     Active Substance: MAGNESIUM
     Indication: Supplementation therapy
     Dosage: 250 MG, QD
     Route: 048
     Dates: start: 20181017
  12. ACETAMINOPHEN [Concomitant]
     Active Substance: ACETAMINOPHEN
     Indication: Cancer pain
     Dosage: UNK, PRN
     Route: 048
     Dates: start: 20181218
  13. EMLA                               /00675501/ [Concomitant]
     Indication: Cancer pain
     Dosage: UNK UNK, QD
     Route: 061
     Dates: start: 20181204
  14. ADVIL PM                           /05810501/ [Concomitant]
     Indication: Cancer pain
     Dosage: UNK, PRN
     Route: 048
     Dates: start: 20181218
  15. GRAPE SEED EXTRACT                 /01364603/ [Concomitant]
     Dosage: 100 MG, TID
     Dates: end: 20190326
  16. ATROVENT [Concomitant]
     Active Substance: IPRATROPIUM BROMIDE
     Dosage: UNK, QID
     Route: 045
  17. ATIVAN [Concomitant]
     Active Substance: LORAZEPAM
     Indication: Anxiety
     Dosage: 0.5 MG, PRN
     Route: 048
  18. ATIVAN [Concomitant]
     Active Substance: LORAZEPAM
     Indication: Nausea
  19. ATIVAN [Concomitant]
     Active Substance: LORAZEPAM
     Indication: Vomiting
  20. ATIVAN [Concomitant]
     Active Substance: LORAZEPAM
     Indication: Sleep disorder
  21. DIPHENHYDRAMINE HYDROCHLORIDE\LIDOCAINE HYDROCHLORIDE\NYSTATIN [Concomitant]
     Active Substance: DIPHENHYDRAMINE HYDROCHLORIDE\LIDOCAINE HYDROCHLORIDE\NYSTATIN
     Indication: Mucosal inflammation
     Dosage: 5 ML, PRN
     Route: 048
  22. DIPHENHYDRAMINE HYDROCHLORIDE\LIDOCAINE HYDROCHLORIDE\NYSTATIN [Concomitant]
     Active Substance: DIPHENHYDRAMINE HYDROCHLORIDE\LIDOCAINE HYDROCHLORIDE\NYSTATIN
     Indication: Mouth ulceration
  23. PRILOSEC [Concomitant]
     Active Substance: OMEPRAZOLE MAGNESIUM
     Dosage: 20 MG, UNK
  24. VENTOLIN HFA [Concomitant]
     Active Substance: ALBUTEROL SULFATE
     Route: 055

REACTIONS (4)
  - Activated partial thromboplastin time prolonged [Recovered/Resolved]
  - Liver function test increased [Recovering/Resolving]
  - Alanine aminotransferase increased [Recovered/Resolved]
  - Aspartate aminotransferase increased [Recovered/Resolved]

NARRATIVE: CASE EVENT DATE: 20190405
